FAERS Safety Report 15659546 (Version 1)
Quarter: 2018Q4

REPORT INFORMATION
  Report Type: Report from Study
  Country: VN (occurrence: VN)
  Receive Date: 20181127
  Receipt Date: 20181127
  Transmission Date: 20190205
  Serious: Yes (Death, Other)
  Sender: FDA-Public Use
  Company Number: VN-ROCHE-2219444

PATIENT

DRUGS (2)
  1. TACROLIMUS. [Suspect]
     Active Substance: TACROLIMUS
     Indication: PROPHYLAXIS AGAINST TRANSPLANT REJECTION
     Route: 065
  2. MYCOPHENOLATE MOFETIL. [Suspect]
     Active Substance: MYCOPHENOLATE MOFETIL
     Indication: PROPHYLAXIS AGAINST TRANSPLANT REJECTION
     Route: 048

REACTIONS (12)
  - Intestinal tuberculosis [Unknown]
  - Tuberculosis [Fatal]
  - Lymph node tuberculosis [Unknown]
  - Respiratory failure [Fatal]
  - Tuberculosis gastrointestinal [Unknown]
  - Hepatitis C [Unknown]
  - Tuberculosis of genitourinary system [Unknown]
  - Hepatitis B [Unknown]
  - Cytomegalovirus infection [Unknown]
  - Pulmonary tuberculosis [Unknown]
  - Tuberculosis of central nervous system [Unknown]
  - Infection [Unknown]
